FAERS Safety Report 8105826-9 (Version None)
Quarter: 2012Q1

REPORT INFORMATION
  Report Type: 
  Country: None (occurrence: None)
  Receive Date: 20120201
  Receipt Date: 20080801
  Transmission Date: 20120608
  Serious: Yes (Hospitalization)
  Sender: FDA-Public Use
  Company Number: PHHY2008CA12781

PATIENT
  Sex: Female

DRUGS (6)
  1. EXELON [Suspect]
     Indication: DEMENTIA ALZHEIMER'S TYPE
     Dosage: 10 MG, QD
     Route: 062
     Dates: start: 20080507, end: 20080627
  2. EXELON [Suspect]
     Dosage: 1.5 X 5 MG
     Dates: start: 20080624
  3. EXELON [Suspect]
     Dosage: 1.5 X 5 MG + 10 MG + 10 MG
     Dates: start: 20080626
  4. EXELON [Suspect]
     Dosage: 1.5 X 5 MG + 10 MG
     Dates: start: 20080625
  5. ZYPREXA [Concomitant]
  6. HALDOL [Concomitant]
     Dosage: 2.5 MG IM STAT
     Route: 030

REACTIONS (4)
  - AGITATION [None]
  - DISTURBANCE IN SOCIAL BEHAVIOUR [None]
  - AGGRESSION [None]
  - INCORRECT DOSE ADMINISTERED [None]
